FAERS Safety Report 25806104 (Version 1)
Quarter: 2025Q3

REPORT INFORMATION
  Report Type: Report from Study
  Country: JP (occurrence: JP)
  Receive Date: 20250916
  Receipt Date: 20250916
  Transmission Date: 20251020
  Serious: Yes (Other)
  Sender: ROCHE
  Company Number: JP-ROCHE-10000386335

PATIENT

DRUGS (2)
  1. ATEZOLIZUMAB [Suspect]
     Active Substance: ATEZOLIZUMAB
     Indication: Hepatocellular carcinoma
     Route: 065
  2. BEVACIZUMAB [Suspect]
     Active Substance: BEVACIZUMAB
     Indication: Hepatocellular carcinoma
     Route: 042

REACTIONS (19)
  - Proteinuria [Unknown]
  - Fatigue [Unknown]
  - Hypertension [Unknown]
  - Hepatic function abnormal [Unknown]
  - Rash [Unknown]
  - Thrombocytopenia [Unknown]
  - Thyroid disorder [Unknown]
  - Diarrhoea [Unknown]
  - Pyrexia [Unknown]
  - Renal impairment [Unknown]
  - Acute kidney injury [Unknown]
  - Decreased appetite [Unknown]
  - Dysphonia [Unknown]
  - Ascites [Unknown]
  - Haemorrhage [Unknown]
  - Epistaxis [Unknown]
  - Varicose vein ruptured [Unknown]
  - Conjunctival haemorrhage [Unknown]
  - Haemorrhage intracranial [Unknown]
